FAERS Safety Report 26037143 (Version 2)
Quarter: 2025Q4

REPORT INFORMATION
  Report Type: Spontaneous
  Country: CN (occurrence: CN)
  Receive Date: 20251112
  Receipt Date: 20251113
  Transmission Date: 20260118
  Serious: Yes (Disabling)
  Sender: MERCK SHARP & DOHME LLC
  Company Number: CN-009507513-2346087

PATIENT
  Age: 77 Year
  Sex: Male
  Weight: 66.5 kg

DRUGS (2)
  1. KEYTRUDA [Suspect]
     Active Substance: PEMBROLIZUMAB
     Indication: Gastric cancer
     Dosage: TIME INTERVAL: TOTAL
     Route: 041
     Dates: start: 20250902, end: 20250902
  2. GIMERACIL\OTERACIL\TEGAFUR [Suspect]
     Active Substance: GIMERACIL\OTERACIL POTASSIUM\TEGAFUR
     Indication: Gastric cancer
     Dosage: 3 CAPSULE BID
     Route: 048
     Dates: start: 20250902, end: 20250902

REACTIONS (2)
  - Troponin I abnormal [Recovering/Resolving]
  - Myocarditis [Recovering/Resolving]

NARRATIVE: CASE EVENT DATE: 20250924
